FAERS Safety Report 13941858 (Version 1)
Quarter: 2017Q3

REPORT INFORMATION
  Report Type: Spontaneous
  Country: US (occurrence: US)
  Receive Date: 20170906
  Receipt Date: 20170906
  Transmission Date: 20171127
  Serious: No
  Sender: FDA-Public Use
  Company Number: US-PTC THERAPEUTICS, INC.-US-2017PTC000079

PATIENT

DRUGS (5)
  1. EMFLAZA [Suspect]
     Active Substance: DEFLAZACORT
     Indication: DUCHENNE MUSCULAR DYSTROPHY
     Dosage: 18 MG, QD
     Route: 048
     Dates: start: 20170719, end: 20170802
  2. DEFLAZACORT [Suspect]
     Active Substance: DEFLAZACORT
     Indication: DUCHENNE MUSCULAR DYSTROPHY
     Dosage: 15 MG, QD
     Dates: start: 20170803
  3. MELATONIN [Concomitant]
     Active Substance: MELATONIN
     Indication: SLEEP DISORDER
     Dosage: 3 MG, QD
  4. VITAMIN D                          /00107901/ [Concomitant]
     Active Substance: ERGOCALCIFEROL
     Indication: PRODUCT USED FOR UNKNOWN INDICATION
     Dosage: 3000 UNIT
  5. DEFLAZACORT [Suspect]
     Active Substance: DEFLAZACORT
     Dosage: 15 MG, QD
     Dates: start: 201306

REACTIONS (3)
  - Facial pain [Unknown]
  - Flushing [Unknown]
  - Panic reaction [Unknown]

NARRATIVE: CASE EVENT DATE: 20170721
